FAERS Safety Report 10639663 (Version 3)
Quarter: 2015Q2

REPORT INFORMATION
  Report Type: Report from Study
  Country: US (occurrence: US)
  Receive Date: 20141209
  Receipt Date: 20150520
  Transmission Date: 20150821
  Serious: Yes (Hospitalization)
  Sender: FDA-Public Use
  Company Number: US-BIOGENIDEC-2014BI128343

PATIENT
  Age: 63 Year
  Sex: Female

DRUGS (2)
  1. AVONEX [Suspect]
     Active Substance: INTERFERON BETA-1A
     Indication: MULTIPLE SCLEROSIS
     Route: 030
     Dates: start: 20150316
  2. AVONEX [Suspect]
     Active Substance: INTERFERON BETA-1A
     Indication: MULTIPLE SCLEROSIS
     Route: 030
     Dates: start: 19980701, end: 20140901

REACTIONS (6)
  - Post procedural haemorrhage [Recovered/Resolved]
  - Postoperative thrombosis [Recovered/Resolved]
  - Post procedural fistula [Recovered/Resolved]
  - Renal failure [Recovered/Resolved]
  - Prescribed overdose [Recovered/Resolved]
  - Pelvic floor muscle weakness [Recovered/Resolved]

NARRATIVE: CASE EVENT DATE: 1998
